FAERS Safety Report 8769499 (Version 2)
Quarter: 2012Q4

REPORT INFORMATION
  Report Type: 
  Country: US (occurrence: US)
  Receive Date: 20120905
  Receipt Date: 20120927
  Transmission Date: 20130627
  Serious: Yes (Other)
  Sender: FDA-Public Use
  Company Number: PHEH2012US017268

PATIENT
  Age: 54 Year
  Sex: Male

DRUGS (8)
  1. GILENYA [Suspect]
     Indication: MULTIPLE SCLEROSIS
     Dosage: 0.5 mg, QD
     Route: 048
     Dates: start: 20120802, end: 20120830
  2. COPAXONE [Concomitant]
     Dosage: UNK UKN, UNK
  3. CYMBALTA [Concomitant]
     Dosage: UNK UKN, UNK
  4. SYNTHROID [Concomitant]
     Dosage: UNK UKN, UNK
  5. PREVACID [Concomitant]
     Dosage: UNK UKN, UNK
  6. NESTAUL [Concomitant]
     Dosage: UNK UKN, UNK
  7. NESTAUL [Concomitant]
     Dosage: UNK UKN, UNK
  8. NESTAUL [Concomitant]
     Dosage: UNK UKN, UNK

REACTIONS (3)
  - Central nervous system lesion [Unknown]
  - Dysarthria [Recovered/Resolved]
  - Memory impairment [Unknown]
